FAERS Safety Report 21572850 (Version 8)
Quarter: 2024Q1

REPORT INFORMATION
  Report Type: Spontaneous
  Country: US (occurrence: US)
  Receive Date: 20221109
  Receipt Date: 20240304
  Transmission Date: 20240409
  Serious: Yes (Other)
  Sender: FDA-Public Use
  Company Number: US-PFIZER INC-202201283103

PATIENT
  Age: 82 Year
  Sex: Female
  Weight: 74.842 kg

DRUGS (3)
  1. XELJANZ [Suspect]
     Active Substance: TOFACITINIB CITRATE
     Indication: Rheumatoid arthritis
     Dosage: 5 MG, ONE IN MORNING AND ONE IN AFTERNOON
     Route: 048
  2. XELJANZ [Suspect]
     Active Substance: TOFACITINIB CITRATE
     Dosage: ^I WAS SUPPOSED TO TAKE TWO TABLETS A DAY AND WAS JUST TAKING ONE A DAY^
     Route: 048
  3. XELJANZ [Suspect]
     Active Substance: TOFACITINIB CITRATE
     Dosage: 5 MG

REACTIONS (14)
  - Sinusitis fungal [Recovered/Resolved]
  - Cardiac pacemaker insertion [Unknown]
  - Dental cyst [Unknown]
  - Cerebrovascular accident [Unknown]
  - Bradycardia [Unknown]
  - Influenza [Unknown]
  - Malaise [Unknown]
  - Urinary tract infection [Unknown]
  - Asthenia [Unknown]
  - Speech disorder [Unknown]
  - Cognitive disorder [Unknown]
  - Nasopharyngitis [Unknown]
  - COVID-19 [Unknown]
  - Intentional product use issue [Unknown]

NARRATIVE: CASE EVENT DATE: 20220214
